FAERS Safety Report 21131491 (Version 1)
Quarter: 2022Q3

REPORT INFORMATION
  Report Type: Spontaneous
  Country: ES (occurrence: ES)
  Receive Date: 20220726
  Receipt Date: 20220726
  Transmission Date: 20221027
  Serious: Yes (Other)
  Sender: FDA-Public Use
  Company Number: None

PATIENT

DRUGS (5)
  1. ACYCLOVIR [Suspect]
     Active Substance: ACYCLOVIR
     Indication: Meningitis pneumococcal
     Dosage: 570 MG, TID
     Route: 042
     Dates: start: 20220526, end: 20220527
  2. PENICILLIN G SODIUM [Suspect]
     Active Substance: PENICILLIN G SODIUM
     Indication: Meningitis pneumococcal
     Dosage: 40000 IU/KG, QD
     Route: 042
     Dates: start: 20220530, end: 20220629
  3. AMPICILLIN SODIUM [Suspect]
     Active Substance: AMPICILLIN SODIUM
     Indication: Meningitis pneumococcal
     Dosage: 2850 MG, QID
     Route: 042
     Dates: start: 20220526, end: 20220527
  4. CEFOTAXIME [Suspect]
     Active Substance: CEFOTAXIME SODIUM
     Indication: Meningitis pneumococcal
     Dosage: 2840 MG, QID
     Route: 042
     Dates: start: 20220526, end: 20220527
  5. DEXAMETHASONE [Concomitant]
     Active Substance: DEXAMETHASONE
     Indication: Meningitis pneumococcal
     Dosage: 6 MG, QID
     Route: 042
     Dates: start: 20220526, end: 20220527

REACTIONS (2)
  - Hyperbilirubinaemia [Recovered/Resolved]
  - Hepatic cytolysis [Recovered/Resolved]

NARRATIVE: CASE EVENT DATE: 20220607
